FAERS Safety Report 11172195 (Version 1)
Quarter: 2015Q2

REPORT INFORMATION
  Report Type: Report from Study
  Country: US (occurrence: US)
  Receive Date: 20150608
  Receipt Date: 20150608
  Transmission Date: 20150821
  Serious: Yes (Other)
  Sender: FDA-Public Use
  Company Number: US-SA-2014SA117173

PATIENT
  Age: 67 Year
  Sex: Female

DRUGS (2)
  1. AUBAGIO [Suspect]
     Active Substance: TERIFLUNOMIDE
     Indication: MULTIPLE SCLEROSIS
     Route: 048
     Dates: start: 20140821
  2. AUBAGIO [Suspect]
     Active Substance: TERIFLUNOMIDE
     Indication: MULTIPLE SCLEROSIS
     Route: 048
     Dates: end: 20150319

REACTIONS (11)
  - Grip strength decreased [Unknown]
  - Drug dose omission [Unknown]
  - Multiple sclerosis relapse [Unknown]
  - Gait disturbance [Unknown]
  - Muscular weakness [Unknown]
  - Skin ulcer [Unknown]
  - Hypertension [Unknown]
  - Rash papular [Unknown]
  - Back pain [Unknown]
  - Therapeutic response unexpected [Unknown]
  - Erythema [Unknown]

NARRATIVE: CASE EVENT DATE: 201408
